FAERS Safety Report 20527747 (Version 1)
Quarter: 2022Q1

REPORT INFORMATION
  Report Type: Spontaneous
  Country: GB (occurrence: GB)
  Receive Date: 20220228
  Receipt Date: 20220228
  Transmission Date: 20220423
  Serious: Yes (Disabling, Other)
  Sender: FDA-Public Use
  Company Number: GB-MYLANLABS-2022M1003588

PATIENT
  Age: 75 Year
  Sex: Female

DRUGS (1)
  1. CLOZARIL [Suspect]
     Active Substance: CLOZAPINE
     Indication: Schizophrenia
     Dosage: 25 MILLIGRAM, QD
     Route: 048
     Dates: start: 20190206, end: 20220105

REACTIONS (2)
  - Lower respiratory tract infection [Recovered/Resolved with Sequelae]
  - Decreased appetite [Unknown]

NARRATIVE: CASE EVENT DATE: 20211101
